FAERS Safety Report 6335659-5 (Version None)
Quarter: 2009Q3

REPORT INFORMATION
  Report Type: 
  Country: None (occurrence: None)
  Receive Date: 20090826
  Receipt Date: 20090811
  Transmission Date: 20100115
  Serious: Yes (Other)
  Sender: FDA-Public Use
  Company Number: SPV1-2009-01686

PATIENT

DRUGS (3)
  1. MESALAMINE [Suspect]
     Indication: COLITIS ULCERATIVE
  2. AZATHIOPRINE [Suspect]
     Indication: COLITIS ULCERATIVE
  3. 6-MP(MERCAPTOPURINE) UNKNOWN [Suspect]
     Indication: COLITIS ULCERATIVE

REACTIONS (1)
  - NEUTROPENIA [None]
